FAERS Safety Report 4788476-1 (Version None)
Quarter: 2005Q4

REPORT INFORMATION
  Report Type: 
  Country: None (occurrence: None)
  Receive Date: 20051005
  Receipt Date: 20051005
  Transmission Date: 20060501
  Serious: Yes (Hospitalization)
  Sender: FDA-Public Use
  Company Number: None

PATIENT
  Age: 72 Year
  Sex: Female

DRUGS (16)
  1. ROSIGLITAZONE [Suspect]
     Indication: DIABETES MELLITUS
     Dosage: 4 MG PO EVERY DAY
     Route: 048
  2. METFORMIN [Suspect]
     Indication: DIABETES MELLITUS
     Dosage: 500 MG PO EVERY DAY
     Route: 048
  3. ZOLPIDEM TARTRATE [Concomitant]
  4. DOCUSATE [Concomitant]
  5. ENALAPRIL [Concomitant]
  6. FLUTICASONE [Concomitant]
  7. HUMULIN 70/30 [Concomitant]
  8. ISOSORBIDE [Concomitant]
  9. POTASSIUM CHLORIDE [Concomitant]
  10. FUROSEMIDE [Concomitant]
  11. SL NITROGLYCERIN [Concomitant]
  12. ACETAMINOPHEN W/ CODEINE [Concomitant]
  13. SENNA [Concomitant]
  14. SALMETEROL [Concomitant]
  15. CETIRIZINE HCL [Concomitant]
  16. CLOTRIMAZOLE [Concomitant]

REACTIONS (3)
  - BLOOD GLUCOSE DECREASED [None]
  - FLANK PAIN [None]
  - INADEQUATE DIET [None]
